FAERS Safety Report 10012976 (Version 1)
Quarter: 2014Q1

REPORT INFORMATION
  Report Type: Spontaneous
  Country: IT (occurrence: IT)
  Receive Date: 20140314
  Receipt Date: 20140314
  Transmission Date: 20141002
  Serious: Yes (Hospitalization)
  Sender: FDA-Public Use
  Company Number: IT-TEVA-467552ISR

PATIENT
  Age: 91 Year
  Sex: Female

DRUGS (5)
  1. AMOXICILLIN [Suspect]
     Indication: BRONCHITIS
     Dosage: 2 G CYCLICAL
     Route: 048
     Dates: start: 20140117, end: 20140118
  2. COUMADIN - 5 MG COMPRESSE [Concomitant]
     Indication: PRODUCT USED FOR UNKNOWN INDICATION
  3. ACCUPRIN - 5 MG COMPRESSE RIVESTITE CON FILM [Concomitant]
     Indication: PRODUCT USED FOR UNKNOWN INDICATION
  4. TRINIPLAS - 5 MG/DIE CEROTTO TRANSDERMICO [Concomitant]
     Indication: PRODUCT USED FOR UNKNOWN INDICATION
  5. LASIX - 25 MG COMPRESSE [Concomitant]
     Indication: PRODUCT USED FOR UNKNOWN INDICATION

REACTIONS (2)
  - Dyspnoea [Not Recovered/Not Resolved]
  - Generalised erythema [Not Recovered/Not Resolved]
